FAERS Safety Report 6580851-8 (Version None)
Quarter: 2010Q1

REPORT INFORMATION
  Report Type: 
  Country: None (occurrence: None)
  Receive Date: 20100215
  Receipt Date: 20100204
  Transmission Date: 20100710
  Serious: Yes (Hospitalization, Other)
  Sender: FDA-Public Use
  Company Number: GB-RANBAXY-2010RR-30305

PATIENT
  Age: 83 Year
  Sex: Female

DRUGS (14)
  1. PARACETAMOL [Suspect]
     Indication: CANCER PAIN
  2. PARACETAMOL [Suspect]
     Indication: PAIN MANAGEMENT
  3. CO-CODAMOL [Suspect]
     Indication: CANCER PAIN
  4. MORPHINE SULFATE [Suspect]
     Indication: CANCER PAIN
     Dosage: 5 MG, UNK
  5. TRAMADOL [Suspect]
     Indication: CANCER PAIN
     Dosage: 50 MG, UNK
  6. TRAMADOL [Suspect]
     Indication: BREAST CANCER METASTATIC
  7. FENTANYL [Suspect]
     Indication: CANCER PAIN
     Dosage: 200 UG, UNK
     Route: 048
  8. FENTANYL [Suspect]
     Indication: DRUG USE FOR UNKNOWN INDICATION
  9. METHADONE HCL [Suspect]
     Indication: COUGH
     Route: 048
  10. CODEINE SULFATE [Concomitant]
     Indication: CANCER PAIN
  11. DEXTROMORAMIDE [Concomitant]
     Indication: CANCER PAIN
     Dosage: 5 MG, UNK
  12. OXYCODONE HCL [Concomitant]
     Indication: CANCER PAIN
     Dosage: 2.5 MG, UNK
  13. CELECOXIB [Concomitant]
     Indication: CANCER PAIN
  14. PAMIDRONIC ACID [Concomitant]
     Route: 042

REACTIONS (8)
  - DIZZINESS [None]
  - DRUG HYPERSENSITIVITY [None]
  - FEELING HOT [None]
  - FLUSHING [None]
  - HYPERHIDROSIS [None]
  - PRURITUS [None]
  - TYPE I HYPERSENSITIVITY [None]
  - VOMITING [None]
